FAERS Safety Report 8812341 (Version 2)
Quarter: 2012Q4

REPORT INFORMATION
  Report Type: Report from Study
  Country: JP (occurrence: JP)
  Receive Date: 20120927
  Receipt Date: 20121010
  Transmission Date: 20130627
  Serious: Yes (Other)
  Sender: FDA-Public Use
  Company Number: JP-VERTEX PHARMACEUTICAL INC.-2012-021916

PATIENT
  Age: 71 Year
  Sex: Male

DRUGS (5)
  1. VX-950 [Suspect]
     Indication: HEPATITIS C
     Dosage: 1500 mg, qd
     Route: 048
     Dates: end: 20120731
  2. PEGINTERFERON ALFA-2B [Suspect]
     Indication: HEPATITIS C
     Dosage: 0.8 UNK, UNK
     Route: 058
     Dates: end: 20120807
  3. PEGINTERFERON ALFA-2B [Suspect]
     Dosage: 0.8 UNK, UNK
     Route: 058
     Dates: start: 20120828
  4. RIBAVIRIN [Concomitant]
     Dosage: 600 mg, qd
     Route: 048
     Dates: end: 20120807
  5. RIBAVIRIN [Concomitant]
     Dosage: 400 mg, qd
     Route: 048
     Dates: start: 20120904

REACTIONS (2)
  - Erythema multiforme [Recovered/Resolved]
  - Retinopathy [Unknown]
